FAERS Safety Report 7881587-3 (Version None)
Quarter: 2011Q4

REPORT INFORMATION
  Report Type: 
  Country: None (occurrence: None)
  Receive Date: 20111101
  Receipt Date: 20110601
  Transmission Date: 20120403
  Serious: No
  Sender: FDA-Public Use
  Company Number: US-AMGEN-USASP2011028289

PATIENT
  Age: 40 Year
  Sex: Female

DRUGS (4)
  1. ENBREL [Suspect]
     Indication: PSORIASIS
     Dosage: 50 MG, QWK
     Dates: start: 20101028
  2. TREXALL [Concomitant]
  3. ADVAIR DISKUS 100/50 [Concomitant]
  4. ENBREL [Suspect]
     Indication: PSORIATIC ARTHROPATHY

REACTIONS (4)
  - ORAL CANDIDIASIS [None]
  - ASTHMA [None]
  - SINUSITIS [None]
  - HYPERSENSITIVITY [None]
